FAERS Safety Report 14176149 (Version 5)
Quarter: 2018Q1

REPORT INFORMATION
  Report Type: Report from Study
  Country: US (occurrence: US)
  Receive Date: 20171109
  Receipt Date: 20180222
  Transmission Date: 20180508
  Serious: Yes (Hospitalization, Other)
  Sender: FDA-Public Use
  Company Number: US-ACTELION-A-NJ2017-162193

PATIENT
  Age: 64 Year
  Sex: Female
  Weight: 95.69 kg

DRUGS (7)
  1. UPTRAVI [Suspect]
     Active Substance: SELEXIPAG
     Dosage: 800 MCG IN AM, 400 MCG IN PM
     Route: 048
  2. ADEMPAS [Concomitant]
     Active Substance: RIOCIGUAT
  3. TYVASO [Concomitant]
     Active Substance: TREPROSTINIL
  4. ELIQUIS [Concomitant]
     Active Substance: APIXABAN
  5. TRACLEER [Concomitant]
     Active Substance: BOSENTAN
     Indication: PULMONARY ARTERIAL HYPERTENSION
     Route: 048
  6. UPTRAVI [Suspect]
     Active Substance: SELEXIPAG
     Indication: PULMONARY ARTERIAL HYPERTENSION
     Dosage: 800 MCG, BID
     Route: 048
  7. UPTRAVI [Suspect]
     Active Substance: SELEXIPAG
     Dosage: 600 MCG IN AM, 800 MCG IN PM
     Route: 048

REACTIONS (9)
  - Drug dose omission [Unknown]
  - Myalgia [Not Recovered/Not Resolved]
  - Heart rate irregular [Unknown]
  - Dialysis [Unknown]
  - Heart rate increased [Unknown]
  - Hypotension [Unknown]
  - Muscle spasms [Unknown]
  - Malaise [Not Recovered/Not Resolved]
  - Pain in extremity [Not Recovered/Not Resolved]

NARRATIVE: CASE EVENT DATE: 20171101
